FAERS Safety Report 12479849 (Version 1)
Quarter: 2016Q2

REPORT INFORMATION
  Report Type: Spontaneous
  Country: IT (occurrence: IT)
  Receive Date: 20160620
  Receipt Date: 20160620
  Transmission Date: 20160815
  Serious: Yes (Life-Threatening, Hospitalization)
  Sender: FDA-Public Use
  Company Number: IT-TEVA-668361ACC

PATIENT
  Age: 54 Year
  Sex: Female

DRUGS (7)
  1. FLUOXETINE HYDROCHLORIDE. [Suspect]
     Active Substance: FLUOXETINE HYDROCHLORIDE
     Indication: WEIGHT DECREASED
  2. PANCREATIN [Suspect]
     Active Substance: PANCRELIPASE
     Indication: WEIGHT DECREASED
  3. SENNA [Suspect]
     Active Substance: SENNA LEAF\SENNOSIDES\SENNOSIDES A AND B
     Indication: WEIGHT DECREASED
  4. BENFLUOREX [Suspect]
     Active Substance: BENFLUOREX
     Indication: WEIGHT DECREASED
  5. CASCARA [Suspect]
     Active Substance: RHAMNUS PURSHIANA BARK EXTRACT
     Indication: WEIGHT DECREASED
  6. VALERIANA [Suspect]
     Active Substance: VALERIAN
     Indication: WEIGHT DECREASED
     Route: 048
  7. METFORMIN [Suspect]
     Active Substance: METFORMIN HYDROCHLORIDE
     Indication: WEIGHT DECREASED

REACTIONS (3)
  - Ventricular fibrillation [Unknown]
  - Cardiac arrest [Unknown]
  - Product use issue [Unknown]
